FAERS Safety Report 24258508 (Version 2)
Quarter: 2024Q4

REPORT INFORMATION
  Report Type: Spontaneous
  Country: US (occurrence: US)
  Receive Date: 20240828
  Receipt Date: 20241009
  Transmission Date: 20250115
  Serious: No
  Sender: MYLAN
  Company Number: US-MYLANLABS-2024M1078567

PATIENT
  Sex: Female
  Weight: 58.06 kg

DRUGS (8)
  1. CANDESARTAN CILEXETIL [Suspect]
     Active Substance: CANDESARTAN CILEXETIL
     Indication: Hypertension
     Dosage: 8 MILLIGRAM, QD (ONCE A DAY)
     Route: 048
     Dates: start: 20240708, end: 20240807
  2. CYCLOSPORINE [Concomitant]
     Active Substance: CYCLOSPORINE
     Indication: Leukaemia
     Dosage: 75 MILLIGRAM, AM
     Route: 065
  3. CYCLOSPORINE [Concomitant]
     Active Substance: CYCLOSPORINE
     Indication: Large granular lymphocytosis
     Dosage: 50 MILLIGRAM, PM
     Route: 065
  4. VALTREX [Concomitant]
     Active Substance: VALACYCLOVIR HYDROCHLORIDE
     Dosage: 500 MILLIGRAM, QD (ONCE DAILY)
     Route: 065
  5. BABY [Concomitant]
     Active Substance: TALC
     Dosage: UNK, QD (ONCE DAILY)
     Route: 065
  6. VITAMIN D3 [Concomitant]
     Active Substance: CHOLECALCIFEROL
     Dosage: 3000 INTERNATIONAL UNIT, QD (ONCE DAILY)
     Route: 065
  7. NORVASC [Concomitant]
     Active Substance: AMLODIPINE BESYLATE
     Dosage: 25 MILLIGRAM, QD (ONCE DAILY)
     Route: 065
  8. VITAMINS [Concomitant]
     Active Substance: VITAMINS
     Dosage: UNK, QD (ONCE DAILY)
     Route: 065

REACTIONS (4)
  - Oropharyngeal pain [Unknown]
  - Odynophagia [Unknown]
  - Tongue cyst [Unknown]
  - Epiglottis ulcer [Unknown]

NARRATIVE: CASE EVENT DATE: 20240101
